FAERS Safety Report 25019946 (Version 1)
Quarter: 2025Q1

REPORT INFORMATION
  Report Type: Spontaneous
  Country: FR (occurrence: FR)
  Receive Date: 20250227
  Receipt Date: 20250227
  Transmission Date: 20250409
  Serious: Yes (Hospitalization)
  Sender: TEVA
  Company Number: None

PATIENT
  Age: 48 Year
  Sex: Female
  Weight: 157 kg

DRUGS (1)
  1. DIAZEPAM [Suspect]
     Active Substance: DIAZEPAM
     Indication: Mixed anxiety and depressive disorder
     Dosage: 0-0-1
     Route: 048
     Dates: end: 20250113

REACTIONS (2)
  - Respiratory distress [Recovering/Resolving]
  - Contraindication to medical treatment [Recovering/Resolving]

NARRATIVE: CASE EVENT DATE: 20250113
